FAERS Safety Report 16088688 (Version 3)
Quarter: 2019Q1

REPORT INFORMATION
  Report Type: Spontaneous
  Country: US (occurrence: US)
  Receive Date: 20190319
  Receipt Date: 20190327
  Transmission Date: 20190418
  Serious: No
  Sender: FDA-Public Use
  Company Number: US-PFIZER INC-2019111560

PATIENT
  Age: 72 Year
  Sex: Female
  Weight: 63 kg

DRUGS (2)
  1. TOVIAZ [Suspect]
     Active Substance: FESOTERODINE FUMARATE
     Indication: HYPERTONIC BLADDER
     Dosage: 8 MG, DAILY (2 TABLETS 8 MG A DAY)
     Route: 048
  2. TOVIAZ [Suspect]
     Active Substance: FESOTERODINE FUMARATE
     Dosage: 8 MG, 1X/DAY
     Route: 048
     Dates: start: 20190311

REACTIONS (7)
  - Dry throat [Not Recovered/Not Resolved]
  - Epistaxis [Not Recovered/Not Resolved]
  - Bladder disorder [Not Recovered/Not Resolved]
  - Expired product administered [Unknown]
  - Throat irritation [Unknown]
  - Dry mouth [Not Recovered/Not Resolved]
  - Nasal dryness [Not Recovered/Not Resolved]

NARRATIVE: CASE EVENT DATE: 201903
